FAERS Safety Report 16269463 (Version 1)
Quarter: 2019Q2

REPORT INFORMATION
  Report Type: Spontaneous
  Country: US (occurrence: US)
  Receive Date: 20190502
  Receipt Date: 20190502
  Transmission Date: 20190711
  Serious: Yes (Hospitalization)
  Sender: FDA-Public Use
  Company Number: None

PATIENT
  Sex: Male

DRUGS (11)
  1. HYDROMOPHONE 4MG TABELTS [Concomitant]
     Dates: start: 20170216
  2. STELARA [Suspect]
     Active Substance: USTEKINUMAB
     Indication: CROHN^S DISEASE
     Dosage: ?          OTHER FREQUENCY:EVERY 8 WEEKS;?
     Route: 058
  3. REQUIP XL 12MG TABLETS [Concomitant]
     Dates: start: 20170216
  4. LOVAZA CAPSULE 1GRAM [Concomitant]
     Dates: start: 20170216
  5. CYMBALTA 20MG CAPSULES [Concomitant]
     Dates: start: 20170216
  6. LISINOPRIL 5MG TABLETS [Concomitant]
     Active Substance: LISINOPRIL
     Dates: start: 20170216
  7. ALLOPURINOL 100MG TABLETS [Concomitant]
     Dates: start: 20170216
  8. OXYCONTIN [Concomitant]
     Active Substance: OXYCODONE HYDROCHLORIDE
     Dates: start: 20170216
  9. NIASPAN 500MG ER TABLETS [Concomitant]
     Dates: start: 20170216
  10. LIALDA 1.2 GRAM TABLETS [Concomitant]
     Dates: start: 20170216
  11. BUPROPION 200MG SR TABLETS [Concomitant]
     Dates: start: 20170216

REACTIONS (1)
  - Crohn^s disease [None]
